FAERS Safety Report 6584522-3 (Version None)
Quarter: 2010Q1

REPORT INFORMATION
  Report Type: 
  Country: None (occurrence: None)
  Receive Date: 20100217
  Receipt Date: 20100209
  Transmission Date: 20100710
  Serious: Yes (Hospitalization)
  Sender: FDA-Public Use
  Company Number: DE-BIOGENIDEC-2009BI040473

PATIENT
  Age: 67 Year
  Sex: Male
  Weight: 71 kg

DRUGS (6)
  1. AVONEX [Suspect]
     Indication: RELAPSING-REMITTING MULTIPLE SCLEROSIS
     Route: 030
     Dates: start: 20050901
  2. METOPROLOL SUCCINATE [Concomitant]
     Indication: DRUG USE FOR UNKNOWN INDICATION
  3. EZETROL [Concomitant]
     Indication: DRUG USE FOR UNKNOWN INDICATION
  4. FLUTICA [Concomitant]
     Indication: DRUG USE FOR UNKNOWN INDICATION
  5. EBASTINE [Concomitant]
     Indication: DRUG USE FOR UNKNOWN INDICATION
  6. ESPRENIT [Concomitant]
     Indication: DRUG USE FOR UNKNOWN INDICATION
     Route: 048

REACTIONS (1)
  - DIVERTICULITIS [None]
